FAERS Safety Report 10482328 (Version 1)
Quarter: 2014Q3

REPORT INFORMATION
  Report Type: Spontaneous
  Country: US (occurrence: US)
  Receive Date: 20140929
  Receipt Date: 20140929
  Transmission Date: 20150326
  Serious: Yes (Hospitalization, Other)
  Sender: FDA-Public Use
  Company Number: US-B.I. PHARMACEUTICALS,INC./RIDGEFIELD-2014-BI-45648BP

PATIENT
  Sex: Female
  Weight: 60.78 kg

DRUGS (15)
  1. ACETAMINOPHEN. [Concomitant]
     Active Substance: ACETAMINOPHEN
     Indication: ARTHRITIS
     Route: 048
  2. LEVEMIR [Concomitant]
     Active Substance: INSULIN DETEMIR
     Indication: DIABETES MELLITUS
     Dosage: 4 U
     Route: 058
  3. OCUTAB [Concomitant]
     Indication: PRODUCT USED FOR UNKNOWN INDICATION
     Dosage: 1 ANZ
     Route: 048
  4. OMEPRAZOLE. [Concomitant]
     Active Substance: OMEPRAZOLE
     Indication: GASTROOESOPHAGEAL REFLUX DISEASE
     Dosage: 40 MG
     Route: 048
  5. WARFARIN [Concomitant]
     Active Substance: WARFARIN
     Indication: ANTICOAGULANT THERAPY
     Dosage: 3 MG
     Route: 048
     Dates: start: 2014
  6. CITALOPRAM [Concomitant]
     Active Substance: CITALOPRAM HYDROBROMIDE
     Indication: DEPRESSION
     Dosage: 20 MG
     Route: 048
     Dates: start: 201406
  7. COMBIVENT [Suspect]
     Active Substance: ALBUTEROL SULFATE\IPRATROPIUM BROMIDE
     Indication: ASTHMA
     Dosage: DOSE PER APPLICATION:20 MCG / 100 MCG;DAILY DOSE:80 MCG/ 400MCG
     Route: 055
     Dates: start: 201308
  8. ALBUTEROL RESCUE INHALER [Concomitant]
     Indication: ASTHMA
     Route: 055
  9. ESZOPICLONE. [Concomitant]
     Active Substance: ESZOPICLONE
     Indication: SLEEP DISORDER
     Route: 048
  10. VITAMIN D3 [Concomitant]
     Active Substance: CHOLECALCIFEROL
     Indication: OSTEOPOROSIS
     Dosage: 5000 U
     Route: 048
  11. QVAR [Concomitant]
     Active Substance: BECLOMETHASONE DIPROPIONATE
     Indication: ASTHMA
     Dosage: 320 MCG
     Route: 055
  12. COMBIVENT [Suspect]
     Active Substance: ALBUTEROL SULFATE\IPRATROPIUM BROMIDE
     Indication: ASTHMA
     Dosage: DOSE PER APPLICATION: 18 MCG/103 MCG DAILY DOSE:  72 MCG/412 MCG
     Route: 055
     Dates: start: 1999, end: 201308
  13. AMLODIPINE [Concomitant]
     Active Substance: AMLODIPINE BESYLATE
     Indication: HYPERTENSION
     Dosage: 5 MG
     Route: 048
     Dates: start: 2010
  14. PRAVASTATIN [Concomitant]
     Active Substance: PRAVASTATIN\PRAVASTATIN SODIUM
     Indication: BLOOD CHOLESTEROL INCREASED
     Dosage: 20 MG
     Route: 048
  15. HUMALOG-SLIDING SCALE [Concomitant]
     Indication: DIABETES MELLITUS
     Dosage: FORMULATION: SUBCUTANEOUS
     Route: 058

REACTIONS (9)
  - Off label use [Unknown]
  - Neoplasm malignant [Recovered/Resolved]
  - Femur fracture [Recovered/Resolved]
  - Hip fracture [Recovered/Resolved]
  - Breast cancer recurrent [Recovered/Resolved]
  - Fall [Recovered/Resolved]
  - Breast cancer [Recovered/Resolved]
  - Urinary incontinence [Not Recovered/Not Resolved]
  - Off label use [Unknown]

NARRATIVE: CASE EVENT DATE: 1999
